FAERS Safety Report 12381305 (Version 1)
Quarter: 2016Q2

REPORT INFORMATION
  Report Type: Spontaneous
  Country: US (occurrence: None)
  Receive Date: 20160517
  Receipt Date: 20160517
  Transmission Date: 20160815
  Serious: No
  Sender: FDA-Public Use
  Company Number: None

PATIENT
  Age: 61 Year
  Sex: Female

DRUGS (11)
  1. VITAMIN D [Concomitant]
     Active Substance: CHOLECALCIFEROL
  2. IBRANCE [Suspect]
     Active Substance: PALBOCICLIB
     Indication: NEOPLASM MALIGNANT
     Route: 048
     Dates: start: 201512
  3. VITAMIN C [Concomitant]
     Active Substance: ASCORBIC ACID
  4. LETROZOLE 2.5 MG TABLET NOVARTIS [Suspect]
     Active Substance: LETROZOLE
     Indication: NEOPLASM MALIGNANT
     Route: 048
     Dates: start: 201512
  5. OXYCODONE [Concomitant]
     Active Substance: OXYCODONE
  6. OXYCODONE AND ACETAMINOPHEN [Concomitant]
     Active Substance: ACETAMINOPHEN\OXYCODONE HYDROCHLORIDE
  7. VALIUM [Concomitant]
     Active Substance: DIAZEPAM
  8. MUCINEX [Concomitant]
     Active Substance: GUAIFENESIN
  9. ALLEGRA [Concomitant]
     Active Substance: FEXOFENADINE HYDROCHLORIDE
  10. LIPIOR [Concomitant]
  11. EFFEXOR [Concomitant]
     Active Substance: VENLAFAXINE HYDROCHLORIDE

REACTIONS (6)
  - Hot flush [None]
  - Headache [None]
  - Rash [None]
  - Nausea [None]
  - Constipation [None]
  - Muscle spasms [None]
